FAERS Safety Report 7418655-6 (Version None)
Quarter: 2011Q2

REPORT INFORMATION
  Report Type: 
  Country: None (occurrence: None)
  Receive Date: 20110415
  Receipt Date: 20101021
  Transmission Date: 20111010
  Serious: Yes (Other)
  Sender: FDA-Public Use
  Company Number: US-BAYER-201020622NA

PATIENT
  Age: 17 Year
  Sex: Female
  Weight: 58 kg

DRUGS (7)
  1. PREVACID [Concomitant]
  2. AMITRIPTYLINE [Concomitant]
     Indication: ABDOMINAL PAIN
     Dosage: UNK
     Dates: start: 20070101, end: 20080101
  3. OCELLA [Suspect]
     Indication: ACNE
  4. YAZ [Suspect]
     Indication: ACNE
  5. YAZ [Suspect]
     Indication: DYSMENORRHOEA
     Dosage: UNK UNK, UNK
     Route: 048
     Dates: start: 20070628, end: 20090801
  6. DICYCLOMINE [Concomitant]
     Indication: IRRITABLE BOWEL SYNDROME
     Dosage: UNK
     Dates: start: 20070101, end: 20080101
  7. OCELLA [Suspect]
     Indication: DYSMENORRHOEA
     Dosage: UNK
     Dates: start: 20090824, end: 20090830

REACTIONS (8)
  - SCAR [None]
  - WEIGHT DECREASED [None]
  - CHOLELITHIASIS [None]
  - GALLBLADDER DISORDER [None]
  - ABDOMINAL PAIN UPPER [None]
  - DIARRHOEA [None]
  - CHOLECYSTITIS CHRONIC [None]
  - PROCEDURAL PAIN [None]
